FAERS Safety Report 4770767-1 (Version None)
Quarter: 2005Q3

REPORT INFORMATION
  Report Type: 
  Country: None (occurrence: None)
  Receive Date: 20050914
  Receipt Date: 20050914
  Transmission Date: 20060218
  Serious: Yes (Life-Threatening, Hospitalization)
  Sender: FDA-Public Use
  Company Number: None

PATIENT
  Age: 87 Year
  Sex: Female

DRUGS (4)
  1. ENALAPRIL    5 MG [Suspect]
     Indication: HYPERTENSION
     Dosage: 5 MG   BID  PO
     Route: 048
  2. LOSARTAN    100 MG [Suspect]
     Indication: HYPERTENSION
     Dosage: 100 MG   QD  PO
     Route: 048
  3. MINOXIDIL [Concomitant]
  4. CLONIDINE HCL [Concomitant]

REACTIONS (5)
  - DYSPNOEA [None]
  - OEDEMA PERIPHERAL [None]
  - RESPIRATORY DISTRESS [None]
  - SWELLING FACE [None]
  - SWOLLEN TONGUE [None]
